FAERS Safety Report 6955560-3 (Version None)
Quarter: 2010Q3

REPORT INFORMATION
  Report Type: 
  Country: None (occurrence: None)
  Receive Date: 20100826
  Receipt Date: 20100826
  Transmission Date: 20110219
  Serious: Yes (Life-Threatening, Hospitalization)
  Sender: FDA-Public Use
  Company Number: None

PATIENT
  Age: 80 Year
  Sex: Male
  Weight: 136.0791 kg

DRUGS (1)
  1. GEODON [Suspect]
     Indication: ANXIETY
     Dates: start: 20100726, end: 20100806

REACTIONS (3)
  - AGGRESSION [None]
  - DELUSIONAL DISORDER, PERSECUTORY TYPE [None]
  - SUICIDAL BEHAVIOUR [None]
